FAERS Safety Report 24734019 (Version 3)
Quarter: 2025Q1

REPORT INFORMATION
  Report Type: Spontaneous
  Country: US (occurrence: US)
  Receive Date: 20241214
  Receipt Date: 20250121
  Transmission Date: 20250408
  Serious: No
  Sender: UNITED THERAPEUTICS
  Company Number: US-UNITED THERAPEUTICS-UNT-2024-038940

PATIENT
  Sex: Female

DRUGS (7)
  1. ORENITRAM [Suspect]
     Active Substance: TREPROSTINIL
     Indication: Pulmonary arterial hypertension
     Dosage: 0.25 MG, TID
     Dates: start: 2024, end: 2024
  2. ORENITRAM [Suspect]
     Active Substance: TREPROSTINIL
     Dosage: 0.375 MG, TID
     Dates: start: 2024, end: 2024
  3. ORENITRAM [Suspect]
     Active Substance: TREPROSTINIL
     Dosage: 0.125 MG, TID
     Dates: start: 2024
  4. ORENITRAM [Suspect]
     Active Substance: TREPROSTINIL
     Dosage: 0.875 MG, TID
  5. ORENITRAM [Suspect]
     Active Substance: TREPROSTINIL
  6. ORENITRAM [Suspect]
     Active Substance: TREPROSTINIL
     Indication: Pulmonary arterial hypertension
  7. AMOXICILLIN [Concomitant]
     Active Substance: AMOXICILLIN
     Indication: Tooth extraction

REACTIONS (4)
  - Headache [Not Recovered/Not Resolved]
  - Liver disorder [Unknown]
  - Dyspnoea [Not Recovered/Not Resolved]
  - Drug intolerance [Recovered/Resolved]

NARRATIVE: CASE EVENT DATE: 20240101
